FAERS Safety Report 4683932-9 (Version None)
Quarter: 2005Q2

REPORT INFORMATION
  Report Type: 
  Country: None (occurrence: None)
  Receive Date: 20050607
  Receipt Date: 20041105
  Transmission Date: 20051028
  Serious: Yes (Life-Threatening, Hospitalization)
  Sender: FDA-Public Use
  Company Number: US-MERCK-0411USA01003

PATIENT
  Age: 86 Year
  Sex: Male
  Weight: 85 kg

DRUGS (15)
  1. VIOXX [Suspect]
     Indication: INTERVERTEBRAL DISC DEGENERATION
     Route: 048
     Dates: start: 20000308, end: 20000101
  2. VIOXX [Suspect]
     Route: 048
     Dates: start: 20000101, end: 20040930
  3. VIOXX [Suspect]
     Indication: ARTHRITIS
     Route: 048
     Dates: start: 20000308, end: 20000101
  4. VIOXX [Suspect]
     Route: 048
     Dates: start: 20000101, end: 20040930
  5. HUMALOG [Concomitant]
     Route: 065
  6. HUMALOG [Concomitant]
     Route: 065
  7. [THERAPY UNSPECIFIED] [Concomitant]
     Route: 065
  8. LANTUS [Concomitant]
     Route: 065
  9. ZOCOR [Concomitant]
     Route: 048
  10. NORVASC [Concomitant]
     Route: 048
  11. VASOTEC [Concomitant]
     Route: 048
  12. COREG [Concomitant]
     Route: 065
  13. DIAZIDE [Concomitant]
     Route: 065
  14. XANAX [Concomitant]
     Route: 065
  15. DESYREL [Concomitant]
     Route: 065

REACTIONS (12)
  - CARDIOMYOPATHY [None]
  - CONFUSIONAL STATE [None]
  - CORONARY ARTERY DISEASE [None]
  - EJECTION FRACTION DECREASED [None]
  - GASTROINTESTINAL DISORDER [None]
  - GLYCOSYLATED HAEMOGLOBIN INCREASED [None]
  - HYPONATRAEMIA [None]
  - MEMORY IMPAIRMENT [None]
  - MITRAL VALVE INCOMPETENCE [None]
  - SENSORY DISTURBANCE [None]
  - TRANSIENT ISCHAEMIC ATTACK [None]
  - TRICUSPID VALVE INCOMPETENCE [None]
